FAERS Safety Report 5099288-6 (Version None)
Quarter: 2006Q3

REPORT INFORMATION
  Report Type: 
  Country: None (occurrence: None)
  Receive Date: 20060731
  Receipt Date: 20050912
  Transmission Date: 20061208
  Serious: Yes (Other)
  Sender: FDA-Public Use
  Company Number: US-2005-018909

PATIENT
  Age: 48 Year
  Sex: Female
  Weight: 83.9 kg

DRUGS (1)
  1. MAGNEVIST [Suspect]
     Indication: NUCLEAR MAGNETIC RESONANCE IMAGING BRAIN
     Dosage: 20 ML, 1 DOSE, INTRAVENOUS
     Route: 042
     Dates: start: 20050912, end: 20050912

REACTIONS (4)
  - COUGH [None]
  - CYANOSIS [None]
  - DYSPNOEA [None]
  - SNEEZING [None]
